FAERS Safety Report 14683696 (Version 1)
Quarter: 2018Q1

REPORT INFORMATION
  Report Type: Spontaneous
  Country: GB (occurrence: GB)
  Receive Date: 20180327
  Receipt Date: 20180327
  Transmission Date: 20180509
  Serious: Yes (Hospitalization)
  Sender: FDA-Public Use
  Company Number: GB-ROCHE-2090198

PATIENT
  Age: 53 Year
  Sex: Female
  Weight: 55.4 kg

DRUGS (10)
  1. MEBENDAZOLE. [Concomitant]
     Active Substance: MEBENDAZOLE
     Route: 065
  2. METFORMIN HYDROCHLORIDE. [Concomitant]
     Active Substance: METFORMIN HYDROCHLORIDE
     Route: 065
  3. MORPHINE [Concomitant]
     Active Substance: MORPHINE
     Route: 065
  4. ATORVASTATIN [Concomitant]
     Active Substance: ATORVASTATIN
     Route: 065
  5. KADCYLA [Suspect]
     Active Substance: ADO-TRASTUZUMAB EMTANSINE
     Indication: METASTATIC NEOPLASM
     Dosage: NOT KNOWN
     Route: 042
  6. PARACETAMOL [Concomitant]
     Active Substance: ACETAMINOPHEN
     Route: 065
  7. PERJETA [Suspect]
     Active Substance: PERTUZUMAB
     Indication: METASTATIC NEOPLASM
     Dosage: NOT KNOWN
     Route: 042
  8. FLUCONAZOLE. [Concomitant]
     Active Substance: FLUCONAZOLE
     Route: 065
  9. LEVOTHYROXINE SODIUM. [Concomitant]
     Active Substance: LEVOTHYROXINE SODIUM
     Route: 065
  10. MACROGOL [Concomitant]
     Active Substance: POLYETHYLENE GLYCOLS
     Route: 065

REACTIONS (7)
  - Urticaria [Not Recovered/Not Resolved]
  - Hypokalaemia [Recovering/Resolving]
  - Nausea [Recovering/Resolving]
  - Localised oedema [Recovering/Resolving]
  - Vision blurred [Recovering/Resolving]
  - Acute pulmonary oedema [Recovered/Resolved with Sequelae]
  - Dry mouth [Not Recovered/Not Resolved]
